FAERS Safety Report 8093993-5 (Version None)
Quarter: 2012Q1

REPORT INFORMATION
  Report Type: 
  Country: None (occurrence: None)
  Receive Date: 20120130
  Receipt Date: 20120118
  Transmission Date: 20120608
  Serious: Yes (Hospitalization, Other)
  Sender: FDA-Public Use
  Company Number: IT-BRISTOL-MYERS SQUIBB COMPANY-16359226

PATIENT
  Age: 76 Year
  Sex: Female

DRUGS (14)
  1. LERCADIP [Concomitant]
  2. PERINDOPRIL ERBUMINE [Concomitant]
  3. SIMVASTATIN [Concomitant]
  4. LASIX [Concomitant]
  5. TENORMIN [Concomitant]
  6. LOSARTAN POTASSIUM [Concomitant]
  7. SIMVASTATIN [Concomitant]
  8. METFORAL [Concomitant]
  9. NITROGLYCERIN [Concomitant]
     Dosage: PATCH
  10. NORVASC [Concomitant]
  11. PANTOPRAZOLE SODIUM [Concomitant]
  12. COUMADIN [Suspect]
     Indication: PROPHYLAXIS
     Route: 048
     Dates: start: 20070220, end: 20111218
  13. NOVORAPID [Concomitant]
     Dosage: 20IUSC
  14. NOVOLOG MIX 70/30 [Concomitant]

REACTIONS (3)
  - ANAEMIA [None]
  - RETROPERITONEAL HAEMATOMA [None]
  - PNEUMONIA [None]
